FAERS Safety Report 8104071-0 (Version None)
Quarter: 2012Q1

REPORT INFORMATION
  Report Type: 
  Country: None (occurrence: None)
  Receive Date: 20120201
  Receipt Date: 20120128
  Transmission Date: 20120608
  Serious: No
  Sender: FDA-Public Use
  Company Number: US-PFIZER INC-2012023551

PATIENT
  Sex: Female

DRUGS (1)
  1. ADVIL LIQUI-GELS [Suspect]
     Indication: TOOTHACHE
     Dosage: 200 MG, AS NEEDED
     Route: 048
     Dates: start: 20120120, end: 20120123

REACTIONS (2)
  - DRUG INEFFECTIVE [None]
  - NAUSEA [None]
